FAERS Safety Report 6033144-1 (Version None)
Quarter: 2009Q1

REPORT INFORMATION
  Report Type: 
  Country: None (occurrence: None)
  Receive Date: 20090105
  Receipt Date: 20071227
  Transmission Date: 20090719
  Serious: Yes (Other)
  Sender: FDA-Public Use
  Company Number: US-000027

PATIENT
  Sex: Female

DRUGS (3)
  1. MULTIHANCE [Suspect]
     Indication: BENIGN SALIVARY GLAND NEOPLASM
     Dosage: 11ML ONCE
     Dates: start: 20071226, end: 20071226
  2. MULTIHANCE [Suspect]
     Indication: NUCLEAR MAGNETIC RESONANCE IMAGING
     Dosage: 11ML ONCE
     Dates: start: 20071226, end: 20071226
  3. MULTIHANCE [Suspect]
     Indication: PAIN
     Dosage: 11ML ONCE
     Dates: start: 20071226, end: 20071226

REACTIONS (1)
  - HYPERSENSITIVITY [None]
